FAERS Safety Report 6523921-2 (Version None)
Quarter: 2009Q4

REPORT INFORMATION
  Report Type: 
  Country: None (occurrence: None)
  Receive Date: 20091230
  Receipt Date: 20091230
  Transmission Date: 20100525
  Serious: No
  Sender: FDA-Public Use
  Company Number: None

PATIENT
  Age: 73 Year
  Sex: Female
  Weight: 103.8737 kg

DRUGS (3)
  1. EXTREME CONGESTION RELIEF [Suspect]
  2. ^SUGAR PILL^ [Concomitant]
  3. ^BLOOD PRESSURE PILL^ [Concomitant]

REACTIONS (3)
  - AGEUSIA [None]
  - ANOSMIA [None]
  - NASAL OEDEMA [None]
